FAERS Safety Report 9935186 (Version 2)
Quarter: 2014Q1

REPORT INFORMATION
  Report Type: Spontaneous
  Country: US (occurrence: US)
  Receive Date: 20140228
  Receipt Date: 20140324
  Transmission Date: 20141002
  Serious: Yes (Other)
  Sender: FDA-Public Use
  Company Number: US-PFIZER INC-2014058504

PATIENT
  Age: 21 Year
  Sex: Male

DRUGS (3)
  1. ZITHROMAX [Suspect]
     Indication: PNEUMONIA
     Dosage: UNK
  2. CLOZARIL [Suspect]
     Dosage: UNK
  3. DEPAKOTE [Suspect]
     Dosage: UNK

REACTIONS (1)
  - Granulocytopenia [Recovered/Resolved]
